FAERS Safety Report 19473267 (Version 4)
Quarter: 2024Q4

REPORT INFORMATION
  Report Type: Spontaneous
  Country: PL (occurrence: PL)
  Receive Date: 20210629
  Receipt Date: 20241002
  Transmission Date: 20250114
  Serious: Yes (Other)
  Sender: NOVARTIS
  Company Number: PL-NOVARTISPH-NVSC2021PL142238

PATIENT
  Age: 49 Year
  Sex: Male

DRUGS (17)
  1. CYTARABINE [Suspect]
     Active Substance: CYTARABINE
     Indication: Acute myeloid leukaemia
     Dosage: 200 MG/M2, Q24H (DAYS 1-7)
     Route: 042
  2. CYCLOSPORINE [Suspect]
     Active Substance: CYCLOSPORINE
     Indication: Acute myeloid leukaemia
     Dosage: UNK
     Route: 065
  3. METHOTREXATE [Suspect]
     Active Substance: METHOTREXATE
     Indication: Acute myeloid leukaemia
     Dosage: UNK
     Route: 065
  4. TACROLIMUS [Suspect]
     Active Substance: TACROLIMUS
     Indication: Acute myeloid leukaemia
     Dosage: UNK
     Route: 065
  5. MYCOPHENOLATE MOFETIL [Suspect]
     Active Substance: MYCOPHENOLATE MOFETIL
     Indication: Acute myeloid leukaemia
     Dosage: UNK
     Route: 065
  6. MIDOSTAURIN [Suspect]
     Active Substance: MIDOSTAURIN
     Indication: Acute myeloid leukaemia
     Dosage: 50 MG, Q12H (FROM DAY 8 TO 21)
     Route: 065
     Dates: start: 202004
  7. SORAFENIB [Suspect]
     Active Substance: SORAFENIB
     Indication: Acute myeloid leukaemia
     Dosage: 400 MG, BID
     Route: 048
  8. IDARUBICIN [Suspect]
     Active Substance: IDARUBICIN
     Indication: Acute myeloid leukaemia
     Dosage: UNK
     Route: 065
  9. DECADRON [Suspect]
     Active Substance: DEXAMETHASONE
     Indication: Acute myeloid leukaemia
     Dosage: UNK
     Route: 065
  10. DAUNORUBICIN [Suspect]
     Active Substance: DAUNORUBICIN
     Indication: Acute myeloid leukaemia
     Dosage: 60 MG/M2 (DAYS 1-3)
     Route: 042
  11. FLUDARABINE PHOSPHATE [Suspect]
     Active Substance: FLUDARABINE PHOSPHATE
     Indication: Acute myeloid leukaemia
     Dosage: 30 MG/M2, QD (-6 DO -2)
     Route: 065
  12. BUSULFAN [Suspect]
     Active Substance: BUSULFAN
     Indication: Prophylaxis
     Dosage: 3.2 MG/M2, QD (-6 DO -3)
     Route: 065
  13. BUSULFAN [Suspect]
     Active Substance: BUSULFAN
     Indication: Acute myeloid leukaemia
  14. DEXAMETHASONE [Suspect]
     Active Substance: DEXAMETHASONE
     Indication: Acute myeloid leukaemia
     Dosage: UNK
     Route: 065
  15. CYCLOPHOSPHAMIDE [Suspect]
     Active Substance: CYCLOPHOSPHAMIDE
     Indication: Acute myeloid leukaemia
     Dosage: UNK
     Route: 065
  16. POSACONAZOLE [Concomitant]
     Active Substance: POSACONAZOLE
     Indication: Antifungal prophylaxis
     Dosage: UNK
     Route: 065
  17. POSACONAZOLE [Concomitant]
     Active Substance: POSACONAZOLE
     Dosage: UNK
     Route: 065

REACTIONS (14)
  - Neutropenia [Unknown]
  - Graft versus host disease [Unknown]
  - Pancytopenia [Unknown]
  - Thrombocytopenia [Unknown]
  - Cytomegalovirus infection reactivation [Unknown]
  - Acute myeloid leukaemia recurrent [Unknown]
  - Anaemia [Unknown]
  - Febrile neutropenia [Unknown]
  - Device related infection [Unknown]
  - Urinary tract infection [Unknown]
  - Rash maculo-papular [Unknown]
  - Pyrexia [Unknown]
  - Headache [Unknown]
  - Diarrhoea [Unknown]

NARRATIVE: CASE EVENT DATE: 20201201
